FAERS Safety Report 25635080 (Version 2)
Quarter: 2025Q3

REPORT INFORMATION
  Report Type: Spontaneous
  Country: CN (occurrence: CN)
  Receive Date: 20250801
  Receipt Date: 20250811
  Transmission Date: 20251020
  Serious: Yes (Hospitalization, Other)
  Sender: NOVARTIS
  Company Number: CN-002147023-NVSC2025CN121041

PATIENT
  Age: 55 Year
  Sex: Female
  Weight: 63 kg

DRUGS (2)
  1. ENTRESTO [Suspect]
     Active Substance: SACUBITRIL\VALSARTAN
     Indication: Cardiac failure chronic
     Dosage: 200.000 MG, QD
     Route: 048
     Dates: start: 20250506, end: 20250711
  2. SPIRONOLACTONE [Suspect]
     Active Substance: SPIRONOLACTONE
     Indication: Product used for unknown indication
     Dosage: 20 MG, QD
     Route: 048
     Dates: start: 20250506

REACTIONS (8)
  - Hyperkalaemia [Recovered/Resolved]
  - Chest discomfort [Unknown]
  - Tachypnoea [Unknown]
  - Abdominal pain [Unknown]
  - Back pain [Unknown]
  - Atrial fibrillation [Unknown]
  - Aortic valve disease mixed [Unknown]
  - Arteriosclerosis coronary artery [Unknown]

NARRATIVE: CASE EVENT DATE: 20250708
